FAERS Safety Report 10027345 (Version 1)
Quarter: 2014Q1

REPORT INFORMATION
  Report Type: Spontaneous
  Country: GB (occurrence: GB)
  Receive Date: 20140321
  Receipt Date: 20140321
  Transmission Date: 20141002
  Serious: Yes (Other)
  Sender: FDA-Public Use
  Company Number: PHHY2014GB029760

PATIENT
  Age: 26 Year
  Sex: Female
  Weight: 55.78 kg

DRUGS (2)
  1. MIRTAZAPINE [Suspect]
     Indication: MAJOR DEPRESSION
     Dosage: 10 MG, UNK
     Route: 048
  2. CITALOPRAM [Concomitant]
     Indication: ILL-DEFINED DISORDER

REACTIONS (3)
  - Abdominal distension [Not Recovered/Not Resolved]
  - Weight increased [Not Recovered/Not Resolved]
  - Dizziness [Recovered/Resolved with Sequelae]
